FAERS Safety Report 6689424-X (Version None)
Quarter: 2010Q2

REPORT INFORMATION
  Report Type: 
  Country: None (occurrence: None)
  Receive Date: 20100420
  Receipt Date: 20100412
  Transmission Date: 20101027
  Serious: Yes (Hospitalization)
  Sender: FDA-Public Use
  Company Number: US-ASTRAZENECA-2009UW17632

PATIENT
  Age: 12223 Day
  Sex: Female

DRUGS (4)
  1. SEROQUEL [Suspect]
     Dosage: 75-200 MG
     Route: 048
     Dates: start: 20041208
  2. TOPAMAX [Concomitant]
     Route: 048
     Dates: start: 20041208
  3. TEMAZEPAM [Concomitant]
     Indication: SLEEP DISORDER
     Route: 048
     Dates: start: 20041208
  4. LEXAPRO [Concomitant]
     Route: 048

REACTIONS (2)
  - HYPERGLYCAEMIC HYPEROSMOLAR NONKETOTIC SYNDROME [None]
  - TYPE 2 DIABETES MELLITUS [None]
